FAERS Safety Report 4613596-1 (Version None)
Quarter: 2005Q1

REPORT INFORMATION
  Report Type: 
  Country: None (occurrence: None)
  Receive Date: 20050315
  Receipt Date: 20050205
  Transmission Date: 20050727
  Serious: No
  Sender: FDA-Public Use
  Company Number: ENTC2005-0042

PATIENT
  Sex: Female

DRUGS (2)
  1. STALEVO 100 [Suspect]
     Indication: PARKINSON'S DISEASE
     Dosage: 150 MG 6QD; ORAL
     Route: 048
     Dates: start: 20041101, end: 20050101
  2. CARBIDOPA AND LEVODOPA [Concomitant]

REACTIONS (3)
  - CHROMATURIA [None]
  - HAIR COLOUR CHANGES [None]
  - SKIN DISCOLOURATION [None]
